FAERS Safety Report 4879111-2 (Version None)
Quarter: 2006Q1

REPORT INFORMATION
  Report Type: 
  Country: None (occurrence: None)
  Receive Date: 20060112
  Receipt Date: 20060109
  Transmission Date: 20060701
  Serious: Yes (Death)
  Sender: FDA-Public Use
  Company Number: US-JNJFOC-20060101771

PATIENT
  Sex: Female
  Weight: 28.12 kg

DRUGS (8)
  1. DURAGESIC-100 [Suspect]
     Route: 062
  2. DURAGESIC-100 [Suspect]
     Route: 062
  3. DURAGESIC-100 [Suspect]
     Route: 062
  4. MS CONTIN [Concomitant]
  5. VICODIN [Concomitant]
  6. VICODIN [Concomitant]
  7. ASPIRIN [Concomitant]
  8. COUMADIN [Concomitant]

REACTIONS (4)
  - DEATH [None]
  - DEVICE FAILURE [None]
  - DYSPNOEA [None]
  - OEDEMA PERIPHERAL [None]
